FAERS Safety Report 13431194 (Version 3)
Quarter: 2017Q2

REPORT INFORMATION
  Report Type: Spontaneous
  Country: IT (occurrence: IT)
  Receive Date: 20170412
  Receipt Date: 20170613
  Transmission Date: 20170830
  Serious: No
  Sender: FDA-Public Use
  Company Number: IT-ROCHE-1919455

PATIENT
  Age: 74 Year
  Sex: Female

DRUGS (7)
  1. TRITTICO [Concomitant]
     Active Substance: TRAZODONE HYDROCHLORIDE
     Dosage: ^25 MG/ML ORAL DROPS, SOLUTION^ BOTTLE 30ML
     Route: 065
  2. VALIUM [Suspect]
     Active Substance: DIAZEPAM
     Indication: PRODUCT USED FOR UNKNOWN INDICATION
     Dosage: ^5 MG/ML ORAL DROPS, SOLUTION^ BOTTLE 20 ML
     Route: 048
     Dates: start: 20170303, end: 20170303
  3. INDERAL [Concomitant]
     Active Substance: PROPRANOLOL HYDROCHLORIDE
     Dosage: ^40 MG TABLETS^ 30 TABLETS
     Route: 065
  4. EN [Suspect]
     Active Substance: DELORAZEPAM
     Indication: PRODUCT USED FOR UNKNOWN INDICATION
     Route: 048
     Dates: start: 20170303, end: 20170303
  5. DIBASE [Concomitant]
     Active Substance: CHOLECALCIFEROL
     Dosage: ^25,000 IU/2.5 ML ORAL SOLUTION^ 1 VIAL 2.5 ML
     Route: 065
  6. MINIAS [Suspect]
     Active Substance: LORMETAZEPAM
     Indication: PRODUCT USED FOR UNKNOWN INDICATION
     Dosage: ^2.5 MG/ML ORAL DROPS, SOLUTION^ BOTTLE 20ML
     Route: 048
     Dates: start: 20170303, end: 20170303
  7. SERENASE (ITALY) [Concomitant]
     Active Substance: HALOPERIDOL
     Dosage: ^2 MG/ML ORAL DROPS, SOLUTION^ 1 BOTTLE 15 ML
     Route: 065

REACTIONS (2)
  - Sopor [Recovering/Resolving]
  - Overdose [Unknown]

NARRATIVE: CASE EVENT DATE: 20170303
